FAERS Safety Report 7855071-7 (Version None)
Quarter: 2011Q4

REPORT INFORMATION
  Report Type: 
  Country: None (occurrence: None)
  Receive Date: 20111026
  Receipt Date: 20111018
  Transmission Date: 20120403
  Serious: Yes (Hospitalization, Other)
  Sender: FDA-Public Use
  Company Number: CA-GILEAD-2011-0045381

PATIENT
  Sex: Male

DRUGS (9)
  1. NORVIR [Concomitant]
     Indication: HIV INFECTION
     Dosage: 100 MG, BID
     Route: 048
     Dates: start: 20070111
  2. INTELENCE [Concomitant]
     Indication: HIV INFECTION
     Dosage: 200 MG, BID
     Route: 048
     Dates: start: 20070111
  3. VITAMIN D [Concomitant]
     Indication: PRODUCT USED FOR UNKNOWN INDICATION
     Dosage: UNK
  4. PREZISTA                           /05513801/ [Concomitant]
     Indication: HIV INFECTION
     Dosage: 600 MG, BID
     Route: 048
     Dates: start: 20070111
  5. CALCIUM CARBONATE [Concomitant]
     Indication: PRODUCT USED FOR UNKNOWN INDICATION
     Dosage: UNK
  6. PREZISTA                           /05513801/ [Concomitant]
     Dosage: 800 MG, QD
     Route: 048
     Dates: end: 20110926
  7. VIREAD [Suspect]
     Indication: HIV INFECTION
     Dosage: 300 MG, QD
     Route: 048
     Dates: start: 20070111, end: 20110926
  8. ADVIL LIQUI-GELS [Suspect]
     Indication: PAIN
     Dosage: 200 UNKNOWN, PRN
  9. NORVIR [Concomitant]
     Dosage: 100 MG, QD
     Route: 048
     Dates: end: 20110926

REACTIONS (2)
  - ANGINA PECTORIS [None]
  - FANCONI SYNDROME ACQUIRED [None]
